FAERS Safety Report 9384841 (Version 2)
Quarter: 2013Q4

REPORT INFORMATION
  Report Type: Spontaneous
  Country: US (occurrence: US)
  Receive Date: 20130705
  Receipt Date: 20131209
  Transmission Date: 20140711
  Serious: No
  Sender: FDA-Public Use
  Company Number: US-PFIZER INC-2013196206

PATIENT
  Age: 73 Year
  Sex: Female

DRUGS (13)
  1. XALKORI [Suspect]
     Indication: LUNG CANCER METASTATIC
     Dosage: 250 MG, 2X/DAY (BID)
     Route: 048
     Dates: start: 20130221
  2. XALKORI [Suspect]
     Dosage: 250 MG, 2X/DAY (BID)
     Route: 048
     Dates: start: 20130320
  3. XGEVA [Concomitant]
     Indication: PROPHYLAXIS
     Dosage: UNK, Q 28 DAYS
     Dates: start: 20130329
  4. VITAMIN B12 [Concomitant]
     Dosage: 4 DOSES, UNK
     Dates: start: 20130329
  5. FUROSEMIDE [Concomitant]
     Indication: EFFUSION
     Dosage: UNK
     Dates: start: 20130509
  6. FUROSEMIDE [Concomitant]
     Indication: OEDEMA
  7. XANAX [Concomitant]
     Indication: ANXIETY
     Dosage: UNK
     Dates: start: 20121206
  8. COUMADIN [Concomitant]
     Dosage: UNK
  9. PAXIL [Concomitant]
     Dosage: UNK
  10. DIGOXIN [Concomitant]
     Dosage: UNK
  11. PRILOSEC [Concomitant]
     Dosage: UNK
  12. LEVOTHYROXINE [Concomitant]
     Dosage: UNK
  13. PROCHLORPERAZINE [Concomitant]
     Indication: NAUSEA
     Dosage: UNK
     Dates: start: 20130222

REACTIONS (3)
  - Dizziness [Unknown]
  - Cough [Recovered/Resolved]
  - Dysphonia [Recovered/Resolved]
